FAERS Safety Report 10248757 (Version 9)
Quarter: 2016Q3

REPORT INFORMATION
  Report Type: Spontaneous
  Country: US (occurrence: US)
  Receive Date: 20140620
  Receipt Date: 20160812
  Transmission Date: 20161109
  Serious: Yes (Hospitalization, Disabling, Other)
  Sender: FDA-Public Use
  Company Number: US-BAYER-2014-089353

PATIENT
  Age: 42 Year
  Sex: Male
  Weight: 108.84 kg

DRUGS (12)
  1. FLUTICASONE [Concomitant]
     Active Substance: FLUTICASONE\FLUTICASONE PROPIONATE
     Indication: SINUS PAIN
     Dosage: UNK
     Dates: start: 201306
  2. DICYCLOMINE [Concomitant]
     Active Substance: DICYCLOMINE HYDROCHLORIDE
     Indication: IRRITABLE BOWEL SYNDROME
     Dosage: UNK
     Dates: start: 201304
  3. CIPRO [Suspect]
     Active Substance: CIPROFLOXACIN HYDROCHLORIDE
     Indication: PROSTATITIS
     Dosage: 500 MG, BID
     Route: 048
     Dates: start: 20130423, end: 20130521
  4. LEVAQUIN [Suspect]
     Active Substance: LEVOFLOXACIN
     Indication: ABSCESS LIMB
     Dosage: 500 MG, UNK
     Dates: start: 201004
  5. NORTRIPTYLIN [Concomitant]
     Active Substance: NORTRIPTYLINE
     Indication: DEPRESSION
     Dosage: UNK
     Dates: start: 20130819, end: 20131029
  6. NORTRIPTYLIN [Concomitant]
     Active Substance: NORTRIPTYLINE
     Indication: DEPRESSION
     Dosage: 10 MG, UNK
     Route: 048
     Dates: start: 20150506
  7. CIPROFLOXACIN HCL [Suspect]
     Active Substance: CIPROFLOXACIN HYDROCHLORIDE
     Indication: PROSTATITIS
     Dosage: 500 MG, UNK
     Dates: start: 20130423
  8. TAMSULOSIN [Concomitant]
     Active Substance: TAMSULOSIN
     Indication: DIURETIC THERAPY
     Dosage: UNK
     Dates: start: 201303
  9. BUSPIRONE [Concomitant]
     Active Substance: BUSPIRONE HYDROCHLORIDE
     Indication: ANXIETY
     Dosage: UNK
     Dates: start: 20130819, end: 20131029
  10. CIPROFLOXACIN. [Suspect]
     Active Substance: CIPROFLOXACIN
     Dosage: UNK
     Dates: start: 201304
  11. CLONAZEPAM. [Concomitant]
     Active Substance: CLONAZEPAM
     Indication: ANXIETY
     Dosage: UNK
     Dates: start: 20130823, end: 20130923
  12. BACLOFEN. [Concomitant]
     Active Substance: BACLOFEN
     Indication: MUSCLE RELAXANT THERAPY
     Dosage: UNK
     Dates: start: 201303

REACTIONS (29)
  - Vision blurred [None]
  - Bacterial prostatitis [None]
  - Emotional distress [None]
  - Confusional state [None]
  - Neuropathy peripheral [None]
  - Eye irritation [None]
  - Neuropathy peripheral [Not Recovered/Not Resolved]
  - Neuropathy peripheral [None]
  - Neuropathy peripheral [Not Recovered/Not Resolved]
  - Burning sensation [None]
  - Joint crepitation [None]
  - Pain in jaw [None]
  - Skin burning sensation [Not Recovered/Not Resolved]
  - Headache [Not Recovered/Not Resolved]
  - Nerve injury [None]
  - Tinnitus [Not Recovered/Not Resolved]
  - Tinnitus [None]
  - Pain [Not Recovered/Not Resolved]
  - Impaired work ability [None]
  - Arthralgia [None]
  - Photopsia [None]
  - Disability [None]
  - Anosmia [None]
  - Cranial nerve disorder [None]
  - Insomnia [Not Recovered/Not Resolved]
  - Prostatic pain [Not Recovered/Not Resolved]
  - Injury [None]
  - Pain [None]
  - Neuropathy peripheral [None]

NARRATIVE: CASE EVENT DATE: 2013
